FAERS Safety Report 7185423-2 (Version None)
Quarter: 2010Q4

REPORT INFORMATION
  Report Type: 
  Country: None (occurrence: None)
  Receive Date: 20101222
  Receipt Date: 20100603
  Transmission Date: 20110411
  Serious: No
  Sender: FDA-Public Use
  Company Number: US-AMGEN-TCS416051

PATIENT

DRUGS (4)
  1. ENBREL [Suspect]
     Indication: RHEUMATOID ARTHRITIS
     Dosage: UNK UNK, UNK
     Dates: start: 20100528
  2. PREDNISONE [Concomitant]
     Dosage: UNK UNK, UNK
  3. FOLIC ACID [Concomitant]
     Dosage: UNK UNK, UNK
  4. METHOTREXATE [Concomitant]
     Dosage: 2.5 MG, QD

REACTIONS (2)
  - FEAR OF NEEDLES [None]
  - INJECTION SITE DISCOMFORT [None]
